FAERS Safety Report 11225630 (Version 1)
Quarter: 2015Q2

REPORT INFORMATION
  Report Type: Spontaneous
  Country: US (occurrence: None)
  Receive Date: 20150626
  Receipt Date: 20150626
  Transmission Date: 20150821
  Serious: Yes (Other)
  Sender: FDA-Public Use
  Company Number: None

PATIENT
  Age: 38 Year
  Sex: Female

DRUGS (13)
  1. LAMICTAL [Concomitant]
     Active Substance: LAMOTRIGINE
  2. SELENIUM [Concomitant]
     Active Substance: SELENIUM
  3. BIOTIN [Concomitant]
     Active Substance: BIOTIN
  4. LACOSAMIDE 100 MG UCB [Suspect]
     Active Substance: LACOSAMIDE
     Indication: SIMPLE PARTIAL SEIZURES
     Dosage: TAKEN BY MOUTH
     Route: 048
     Dates: start: 20140303, end: 20150122
  5. ACCOLATE [Concomitant]
     Active Substance: ZAFIRLUKAST
  6. SYNTHROID [Concomitant]
     Active Substance: LEVOTHYROXINE SODIUM
  7. ACIDOPHILUS [Concomitant]
     Active Substance: LACTOBACILLUS ACIDOPHILUS
  8. POTASSIUM/MAGNESIUM [Concomitant]
  9. FLAXSEED [Concomitant]
     Active Substance: FLAX SEED
  10. FOLIC ACID. [Concomitant]
     Active Substance: FOLIC ACID
  11. MULTI COMPLETE [Concomitant]
  12. IRON [Concomitant]
     Active Substance: IRON
  13. ZINC [Concomitant]
     Active Substance: ZINC\ZINC CHLORIDE

REACTIONS (2)
  - Product substitution issue [None]
  - Alopecia [None]

NARRATIVE: CASE EVENT DATE: 20140303
